FAERS Safety Report 21358434 (Version 1)
Quarter: 2022Q3

REPORT INFORMATION
  Report Type: Spontaneous
  Country: US (occurrence: None)
  Receive Date: 20220920
  Receipt Date: 20220920
  Transmission Date: 20221026
  Serious: No
  Sender: FDA-Public Use
  Company Number: None

PATIENT
  Age: 63 Year
  Sex: Female
  Weight: 63.5 kg

DRUGS (10)
  1. CYCLOPHOSPHAMIDE [Suspect]
     Active Substance: CYCLOPHOSPHAMIDE
     Indication: Breast cancer female
     Dosage: FREQUENCY : DAILY;?
     Route: 048
     Dates: start: 20220701
  2. ALLEGRA [Concomitant]
     Active Substance: FEXOFENADINE HYDROCHLORIDE
  3. BIOTIN [Concomitant]
     Active Substance: BIOTIN
  4. CHOLRHEXIDINE [Concomitant]
  5. FLUOROURACIL [Concomitant]
     Active Substance: FLUOROURACIL
  6. GABAPENTIN [Concomitant]
     Active Substance: GABAPENTIN
  7. METHOTREXATE [Concomitant]
     Active Substance: METHOTREXATE
  8. VITAMINS [Concomitant]
     Active Substance: VITAMINS
  9. NAPROXEN [Concomitant]
     Active Substance: NAPROXEN
  10. CHONDROITIN SULFATE A\GLUCOSAMINE [Concomitant]
     Active Substance: CHONDROITIN SULFATE A\GLUCOSAMINE

REACTIONS (1)
  - SARS-CoV-2 test positive [None]
